FAERS Safety Report 14664164 (Version 2)
Quarter: 2018Q2

REPORT INFORMATION
  Report Type: Report from Study
  Country: BR (occurrence: BR)
  Receive Date: 20180321
  Receipt Date: 20180404
  Transmission Date: 20180711
  Serious: Yes (Other)
  Sender: FDA-Public Use
  Company Number: PHHY2018BR047873

PATIENT
  Sex: Female
  Weight: 69 kg

DRUGS (7)
  1. ACLASTA [Suspect]
     Active Substance: ZOLEDRONIC ACID
     Dosage: 1 DF (5MG/100ML), Q12MO
     Route: 042
     Dates: start: 2015, end: 2015
  2. VITAMIN D [Suspect]
     Active Substance: CHOLECALCIFEROL
     Indication: PAIN
  3. ACLASTA [Suspect]
     Active Substance: ZOLEDRONIC ACID
     Indication: OSTEOPOROSIS
     Dosage: 1 DF (5MG/100ML), Q12MO
     Route: 042
     Dates: start: 2013
  4. ACLASTA [Suspect]
     Active Substance: ZOLEDRONIC ACID
     Dosage: 1 DF (5MG/100ML), Q12MO
     Route: 042
     Dates: start: 2017, end: 2017
  5. VITAMIN D [Suspect]
     Active Substance: CHOLECALCIFEROL
     Indication: SPINAL PAIN
     Route: 065
  6. CALCIUM [Concomitant]
     Active Substance: CALCIUM
     Indication: PRODUCT USED FOR UNKNOWN INDICATION
     Route: 065
  7. GLUCOSAMIN [Concomitant]
     Indication: OSTEOARTHRITIS
     Dosage: UNK
     Route: 065

REACTIONS (11)
  - Overweight [Not Recovered/Not Resolved]
  - Spinal pain [Not Recovered/Not Resolved]
  - Therapeutic response decreased [Unknown]
  - Osteoarthritis [Not Recovered/Not Resolved]
  - Confusional state [Unknown]
  - Body height decreased [Unknown]
  - Drug ineffective [Unknown]
  - Malaise [Unknown]
  - Joint swelling [Recovering/Resolving]
  - Mass [Unknown]
  - Spinal fracture [Not Recovered/Not Resolved]
